FAERS Safety Report 7006592-0 (Version None)
Quarter: 2010Q3

REPORT INFORMATION
  Report Type: 
  Country: None (occurrence: None)
  Receive Date: 20100921
  Receipt Date: 20100921
  Transmission Date: 20110219
  Serious: Yes (Other)
  Sender: FDA-Public Use
  Company Number: None

PATIENT
  Age: 16 Year
  Sex: Male
  Weight: 70.3075 kg

DRUGS (1)
  1. PROZAC [Suspect]

REACTIONS (4)
  - APATHY [None]
  - BLUNTED AFFECT [None]
  - GENITAL HYPOAESTHESIA [None]
  - GROWTH RETARDATION [None]
